FAERS Safety Report 23891511 (Version 3)
Quarter: 2024Q2

REPORT INFORMATION
  Report Type: Report from Study
  Country: IE (occurrence: IE)
  Receive Date: 20240523
  Receipt Date: 20240607
  Transmission Date: 20240716
  Serious: Yes (Other)
  Sender: FDA-Public Use
  Company Number: IE-Merck Healthcare KGaA-2024027123

PATIENT
  Age: 56 Year
  Sex: Female

DRUGS (3)
  1. MAVENCLAD [Suspect]
     Active Substance: CLADRIBINE
     Indication: Relapsing-remitting multiple sclerosis
     Dosage: YEAR ONE WEEK ONE THERAPY: 2 DOSAGE FORMS ON DAYS 1 TO 2 AND 1 DOSAGE FORM ON DAYS 3 TO 5
     Route: 048
     Dates: start: 20230410
  2. MAVENCLAD [Suspect]
     Active Substance: CLADRIBINE
     Dosage: YEAR ONE WEEK FIVE THERAPY: 2 DOSAGE FORMS ON DAYS 1 TO 2 AND 1 DOSAGE FORM ON DAYS 3 TO 5
     Route: 048
     Dates: start: 20230515, end: 20230519
  3. MAVENCLAD [Suspect]
     Active Substance: CLADRIBINE
     Dosage: YEAR TWO WEEK ONE THERAPY: 2 DOSAGE FORMS ON DAYS 1 TO 2 AND 1 DOSAGE FORM ON DAYS 3 TO 5
     Route: 048
     Dates: start: 20240422

REACTIONS (3)
  - Lower respiratory tract infection [Recovered/Resolved]
  - Lymphocyte count decreased [Recovering/Resolving]
  - Fatigue [Unknown]

NARRATIVE: CASE EVENT DATE: 20240519
